FAERS Safety Report 13924374 (Version 1)
Quarter: 2017Q3

REPORT INFORMATION
  Report Type: Report from Study
  Country: US (occurrence: US)
  Receive Date: 20170831
  Receipt Date: 20170831
  Transmission Date: 20171127
  Serious: Yes (Hospitalization)
  Sender: FDA-Public Use
  Company Number: US-EISAI MEDICAL RESEARCH-EC-2017-026181

PATIENT
  Age: 82 Year
  Sex: Male
  Weight: 90 kg

DRUGS (16)
  1. LENVIMA [Suspect]
     Active Substance: LENVATINIB
     Route: 048
     Dates: start: 20170822
  2. ASPIRIN. [Concomitant]
     Active Substance: ASPIRIN
  3. CLONIDINE. [Concomitant]
     Active Substance: CLONIDINE
  4. LISINOPRIL. [Concomitant]
     Active Substance: LISINOPRIL
  5. LENVIMA [Suspect]
     Active Substance: LENVATINIB
     Indication: THYROID CANCER
     Route: 048
     Dates: start: 20170310, end: 201704
  6. LENVIMA [Suspect]
     Active Substance: LENVATINIB
     Route: 048
     Dates: start: 201707, end: 20170811
  7. ZOCOR [Concomitant]
     Active Substance: SIMVASTATIN
  8. NIASPAN [Concomitant]
     Active Substance: NIACIN
  9. LEVOXYL [Concomitant]
     Active Substance: LEVOTHYROXINE SODIUM
  10. RAMIPRIL. [Concomitant]
     Active Substance: RAMIPRIL
  11. IMODIUM [Concomitant]
     Active Substance: LOPERAMIDE HYDROCHLORIDE
  12. LENVIMA [Suspect]
     Active Substance: LENVATINIB
     Route: 048
     Dates: start: 2017, end: 20170721
  13. NORVASC [Concomitant]
     Active Substance: AMLODIPINE BESYLATE
  14. TOPROL XL [Concomitant]
     Active Substance: METOPROLOL SUCCINATE
  15. LEXAPRO [Concomitant]
     Active Substance: ESCITALOPRAM OXALATE
  16. AMLODIPINE [Concomitant]
     Active Substance: AMLODIPINE BESYLATE

REACTIONS (17)
  - Decreased appetite [Unknown]
  - Depression [Unknown]
  - Mobility decreased [Not Recovered/Not Resolved]
  - Systolic hypertension [Unknown]
  - Oral pain [Unknown]
  - Decreased appetite [Unknown]
  - Frustration tolerance decreased [Unknown]
  - Dysphonia [Unknown]
  - Bradycardia [Unknown]
  - Hypokinesia [Unknown]
  - Dysphagia [Unknown]
  - Asthenia [Unknown]
  - Fatigue [Unknown]
  - Weight decreased [Unknown]
  - Diarrhoea [Not Recovered/Not Resolved]
  - Dehydration [Unknown]
  - Constipation [Not Recovered/Not Resolved]

NARRATIVE: CASE EVENT DATE: 2017
